FAERS Safety Report 21466340 (Version 1)
Quarter: 2022Q4

REPORT INFORMATION
  Report Type: Spontaneous
  Country: CN (occurrence: CN)
  Receive Date: 20221017
  Receipt Date: 20221017
  Transmission Date: 20230112
  Serious: Yes (Other)
  Sender: FDA-Public Use
  Company Number: CN-BAYER-2022A139243

PATIENT
  Age: 9 Decade

DRUGS (2)
  1. VERICIGUAT HYDROCHLORIDE [Suspect]
     Active Substance: VERICIGUAT HYDROCHLORIDE
     Dosage: 2.5 MG
     Route: 048
     Dates: start: 2022, end: 2022
  2. VERICIGUAT HYDROCHLORIDE [Suspect]
     Active Substance: VERICIGUAT HYDROCHLORIDE
     Dosage: 1.25 MG
     Route: 048
     Dates: start: 2022

REACTIONS (5)
  - Atrial fibrillation [Unknown]
  - Suspected counterfeit product [Unknown]
  - Product outer packaging issue [Unknown]
  - Product label issue [Unknown]
  - Wrong technique in product usage process [Unknown]

NARRATIVE: CASE EVENT DATE: 20220101
